FAERS Safety Report 12367852 (Version 2)
Quarter: 2016Q2

REPORT INFORMATION
  Report Type: Spontaneous
  Country: US (occurrence: US)
  Receive Date: 20160513
  Receipt Date: 20160620
  Transmission Date: 20160815
  Serious: Yes (Hospitalization, Other)
  Sender: FDA-Public Use
  Company Number: US-SMITH AND NEPHEW, INC-2016SMT00390

PATIENT
  Age: 72 Year
  Sex: Male
  Weight: 115.65 kg

DRUGS (3)
  1. UNSPECIFIED MEDICATIONS [Concomitant]
     Active Substance: UNSPECIFIED INGREDIENT
  2. REGRANEX [Suspect]
     Active Substance: BECAPLERMIN
     Indication: WOUND
     Dosage: UNK UNK, 1X/DAY
     Route: 061
     Dates: start: 201512, end: 201601
  3. UNSPECIFIED PAIN MEDICATIONS [Concomitant]
     Active Substance: UNSPECIFIED INGREDIENT

REACTIONS (5)
  - Leg amputation [Recovered/Resolved with Sequelae]
  - Diabetes mellitus inadequate control [Unknown]
  - Infection [Unknown]
  - Cardiovascular insufficiency [Unknown]
  - Drug effect incomplete [Recovered/Resolved with Sequelae]

NARRATIVE: CASE EVENT DATE: 201512
